FAERS Safety Report 23134846 (Version 1)
Quarter: 2023Q4

REPORT INFORMATION
  Report Type: Spontaneous
  Country: US (occurrence: None)
  Receive Date: 20231031
  Receipt Date: 20231031
  Transmission Date: 20240110
  Serious: Yes (Other)
  Sender: FDA-Public Use
  Company Number: None

PATIENT
  Age: 46 Year
  Sex: Female
  Weight: 141.75 kg

DRUGS (7)
  1. OZEMPIC [Suspect]
     Active Substance: SEMAGLUTIDE
     Indication: Glycosylated haemoglobin increased
     Dosage: OTHER QUANTITY : 1 INJECTION(S);?OTHER FREQUENCY : 1 TIME WEEK;?OTHER ROUTE : INJECT IN STOMACH;?
     Route: 050
     Dates: start: 20230817, end: 20230825
  2. OZEMPIC [Suspect]
     Active Substance: SEMAGLUTIDE
     Indication: Blood cholesterol increased
  3. Super Enzymes [Concomitant]
  4. CAPRYLIC ACID [Concomitant]
  5. VITAMINS [Concomitant]
     Active Substance: VITAMINS
  6. candifense [Concomitant]
  7. microb clear [Concomitant]

REACTIONS (2)
  - Swelling [None]
  - Goitre [None]

NARRATIVE: CASE EVENT DATE: 20230828
